FAERS Safety Report 8241332-9 (Version None)
Quarter: 2012Q1

REPORT INFORMATION
  Report Type: 
  Country: None (occurrence: None)
  Receive Date: 20120328
  Receipt Date: 20120319
  Transmission Date: 20120608
  Serious: Yes (Other)
  Sender: FDA-Public Use
  Company Number: US-ASTRAZENECA-2012SE13067

PATIENT
  Age: 67 Year
  Sex: Female

DRUGS (1)
  1. SEROQUEL [Suspect]
     Indication: SLEEP DISORDER
     Route: 048

REACTIONS (6)
  - EPILEPSY [None]
  - GLAUCOMA [None]
  - ADVERSE EVENT [None]
  - OCULAR VASCULAR DISORDER [None]
  - SOMNOLENCE [None]
  - OFF LABEL USE [None]
